FAERS Safety Report 8585095-6 (Version None)
Quarter: 2012Q3

REPORT INFORMATION
  Report Type: 
  Country: None (occurrence: None)
  Receive Date: 20120810
  Receipt Date: 20120802
  Transmission Date: 20120928
  Serious: Yes (Hospitalization)
  Sender: FDA-Public Use
  Company Number: GB-NOVOPROD-348396

PATIENT
  Age: 72 Year
  Sex: Male
  Weight: 94 kg

DRUGS (3)
  1. VICTOZA [Suspect]
     Indication: OBESITY
     Dosage: 0.6 MG, QD
     Route: 058
     Dates: start: 20110723
  2. VICTOZA [Suspect]
     Indication: TYPE 2 DIABETES MELLITUS
     Dosage: 3.0 MG, QD
     Route: 058
     Dates: end: 20120318
  3. VICTOZA [Suspect]
     Dosage: 3.0 MG, QD
     Dates: start: 20120330

REACTIONS (1)
  - PERIPHERAL ARTERIAL OCCLUSIVE DISEASE [None]
